FAERS Safety Report 4998133-4 (Version None)
Quarter: 2006Q2

REPORT INFORMATION
  Report Type: 
  Country: None (occurrence: None)
  Receive Date: 20060510
  Receipt Date: 20051005
  Transmission Date: 20061013
  Serious: Yes (Hospitalization, Other)
  Sender: FDA-Public Use
  Company Number: PR-MERCK-0510USA04205

PATIENT
  Age: 71 Year
  Sex: Female
  Weight: 95 kg

DRUGS (4)
  1. VIOXX [Suspect]
     Indication: ARTHROPATHY
     Route: 048
     Dates: start: 20000501
  2. VIOXX [Suspect]
     Indication: PAIN
     Route: 048
     Dates: start: 20000501
  3. TENORMIN [Concomitant]
     Indication: HYPERTENSION
     Route: 065
     Dates: start: 20000101
  4. LEVAQUIN [Concomitant]
     Indication: VASCULITIS
     Route: 065
     Dates: start: 20000101

REACTIONS (12)
  - ANGINA PECTORIS [None]
  - ARRHYTHMIA [None]
  - ARTHROPATHY [None]
  - CARDIOVASCULAR DISORDER [None]
  - CEREBROVASCULAR ACCIDENT [None]
  - DIVERTICULITIS [None]
  - EMBOLISM [None]
  - FALL [None]
  - HYPERTENSION [None]
  - MYOCARDIAL INFARCTION [None]
  - RENAL DISORDER [None]
  - VASCULITIS [None]
